FAERS Safety Report 18717320 (Version 1)
Quarter: 2021Q1

REPORT INFORMATION
  Report Type: Spontaneous
  Country: US (occurrence: US)
  Receive Date: 20210108
  Receipt Date: 20210108
  Transmission Date: 20210419
  Serious: Yes (Hospitalization)
  Sender: FDA-Public Use
  Company Number: US-AMNEAL PHARMACEUTICALS-2020-AMRX-03577

PATIENT
  Sex: Female
  Weight: 34 kg

DRUGS (3)
  1. VIGABATRIN. [Suspect]
     Active Substance: VIGABATRIN
     Indication: BLINDNESS UNILATERAL
  2. VIGABATRIN. [Suspect]
     Active Substance: VIGABATRIN
     Indication: EPILEPSY
     Dosage: 1000 MILLIGRAM, 3 /DAY
     Route: 048
     Dates: end: 2020
  3. VIGABATRIN. [Suspect]
     Active Substance: VIGABATRIN
     Indication: MICROPHTHALMOS

REACTIONS (1)
  - Respiratory failure [Unknown]
